FAERS Safety Report 7591661-7 (Version None)
Quarter: 2011Q3

REPORT INFORMATION
  Report Type: 
  Country: None (occurrence: None)
  Receive Date: 20110706
  Receipt Date: 20080811
  Transmission Date: 20111222
  Serious: Yes (Death, Other)
  Sender: FDA-Public Use
  Company Number: US-BAYER-200830427NA

PATIENT
  Age: 64 Year
  Sex: Female
  Weight: 97 kg

DRUGS (29)
  1. LASIX [Concomitant]
     Dosage: 80 MG EVERY MORNING
     Route: 048
  2. ATENOLOL [Concomitant]
     Dosage: 100 MG, QD
     Route: 048
  3. ZINACEF [Concomitant]
     Dosage: 1.5 GRAM
     Route: 042
     Dates: start: 20030326, end: 20030326
  4. CALCIUM CHLORIDE [Concomitant]
     Dosage: 1
     Route: 042
     Dates: start: 20030326, end: 20030326
  5. TRASYLOL [Suspect]
     Indication: AORTIC SURGERY
     Dosage: 100 ML BOLUS
     Route: 042
     Dates: start: 20030326, end: 20030326
  6. TRASYLOL [Suspect]
     Indication: ATRIAL SEPTAL DEFECT REPAIR
     Dosage: 50 ML/HOUR INFUSION
     Route: 042
     Dates: start: 20030326, end: 20030326
  7. RED BLOOD CELLS [Concomitant]
     Dosage: 2 U, ONCE
     Route: 042
     Dates: start: 20030326
  8. AMARYL [Concomitant]
     Dosage: 4 MG, QD
     Route: 048
  9. DIGOXIN [Concomitant]
     Dosage: 0.125 MG, QD
     Route: 048
  10. LEVOPHED [Concomitant]
     Dosage: 20-50 CCS/HOUR
     Route: 042
     Dates: start: 20030326, end: 20030326
  11. DYNACIRC [Concomitant]
     Dosage: 10 MG, QD
     Route: 048
  12. HYDROXYZINE [Concomitant]
     Dosage: 10 MG AS NEEDED
     Route: 048
  13. HEPARIN [Concomitant]
     Dosage: 50,000 UNITS
     Route: 042
     Dates: start: 20030326, end: 20030326
  14. TRASYLOL [Suspect]
     Indication: PRODUCT USED FOR UNKNOWN INDICATION
     Dosage: 1 ML INITIAL TEST DOSE
     Route: 042
     Dates: start: 20030326, end: 20030326
  15. ALDACTONE [Concomitant]
     Dosage: 25 MG, BID
     Route: 048
  16. HYDROCODONE BITARTRATE [Concomitant]
     Dosage: AS NEEDED
     Route: 048
  17. VERSED [Concomitant]
     Dosage: 2 MG
     Route: 042
     Dates: start: 20030326, end: 20030326
  18. MILRINONE [Concomitant]
     Dosage: 0.5 MG/KG/MIN
     Route: 042
     Dates: start: 20030326, end: 20030326
  19. ZOLOFT [Concomitant]
     Dosage: 100 MG, QD
     Route: 048
  20. BENICAR [Concomitant]
     Dosage: 20 MG, QD
     Route: 048
  21. NITROGLYCERIN [Concomitant]
     Dosage: 10-50 ML/HOUR
     Route: 042
     Dates: start: 20030326, end: 20030326
  22. FENTANYL [Concomitant]
     Dosage: 750 MG
     Route: 042
     Dates: start: 20030326, end: 20030326
  23. INSULIN [Concomitant]
     Dosage: 5 UNITS/HOUR
     Route: 042
     Dates: start: 20030326, end: 20030326
  24. ESMOLOL [Concomitant]
     Dosage: 100 MG
     Route: 042
     Dates: start: 20030326, end: 20030326
  25. PLATELETS [Concomitant]
     Dosage: 1 U, ONCE
     Route: 042
     Dates: start: 20030326, end: 20030326
  26. LASIX [Concomitant]
     Dosage: 40 MG EVERY EVENING
     Route: 048
  27. LASIX [Concomitant]
     Dosage: 20 MG
     Route: 042
     Dates: start: 20030326, end: 20030326
  28. ACTOS [Concomitant]
     Dosage: 30 MG, QD
     Route: 048
  29. MAGNESIUM [Concomitant]
     Dosage: 5 MG
     Route: 042
     Dates: start: 20030326, end: 20030326

REACTIONS (13)
  - EMOTIONAL DISTRESS [None]
  - DEATH [None]
  - RENAL IMPAIRMENT [None]
  - RENAL INJURY [None]
  - UNEVALUABLE EVENT [None]
  - ANXIETY [None]
  - ANHEDONIA [None]
  - FEAR [None]
  - PAIN [None]
  - INJURY [None]
  - MULTI-ORGAN FAILURE [None]
  - RENAL FAILURE [None]
  - STRESS [None]
